FAERS Safety Report 7548090-1 (Version None)
Quarter: 2011Q2

REPORT INFORMATION
  Report Type: 
  Country: None (occurrence: None)
  Receive Date: 20110615
  Receipt Date: 20110125
  Transmission Date: 20111010
  Serious: Yes (Hospitalization)
  Sender: FDA-Public Use
  Company Number: US-BAYER-201010612NA

PATIENT
  Age: 18 Year
  Sex: Female
  Weight: 63.492 kg

DRUGS (2)
  1. YAZ [Suspect]
     Indication: MENSTRUATION IRREGULAR
     Route: 048
     Dates: start: 20090101, end: 20091109
  2. PREDNISONE [Concomitant]

REACTIONS (4)
  - PULMONARY EMBOLISM [None]
  - PLEURISY [None]
  - DYSPNOEA [None]
  - CHEST PAIN [None]
